FAERS Safety Report 15133247 (Version 5)
Quarter: 2019Q1

REPORT INFORMATION
  Report Type: Report from Study
  Country: US (occurrence: US)
  Receive Date: 20180712
  Receipt Date: 20190220
  Transmission Date: 20190417
  Serious: Yes (Death, Hospitalization, Disabling, Other)
  Sender: FDA-Public Use
  Company Number: US-CONCORDIA PHARMACEUTICALS INC.-GSH201806-002251

PATIENT
  Age: 49 Year
  Sex: Male

DRUGS (4)
  1. PLAQUENIL [Suspect]
     Active Substance: HYDROXYCHLOROQUINE SULFATE
     Indication: LUPUS-LIKE SYNDROME
     Route: 065
     Dates: start: 20180613
  2. KEVZARA [Suspect]
     Active Substance: SARILUMAB
     Indication: RHEUMATOID ARTHRITIS
     Route: 058
     Dates: start: 20170901
  3. SARILUMAB PRE-FILLED SYRINGE [Suspect]
     Active Substance: SARILUMAB
     Indication: RHEUMATOID ARTHRITIS
     Route: 065
  4. KEVZARA [Suspect]
     Active Substance: SARILUMAB
     Route: 058
     Dates: start: 20180624, end: 20181126

REACTIONS (8)
  - Product use issue [Unknown]
  - Musculoskeletal stiffness [Not Recovered/Not Resolved]
  - Therapeutic response decreased [Unknown]
  - Abdominal infection [Unknown]
  - Pain [Not Recovered/Not Resolved]
  - Hypersensitivity [Fatal]
  - Product dose omission [Unknown]
  - Antiphospholipid antibodies [Fatal]

NARRATIVE: CASE EVENT DATE: 201806
